FAERS Safety Report 7006566-X (Version None)
Quarter: 2010Q3

REPORT INFORMATION
  Report Type: 
  Country: None (occurrence: None)
  Receive Date: 20100921
  Receipt Date: 20090223
  Transmission Date: 20110219
  Serious: No
  Sender: FDA-Public Use
  Company Number: US-WYE-H07960909

PATIENT
  Sex: Male
  Weight: 72.7 kg

DRUGS (2)
  1. XYNTHA [Suspect]
     Indication: FACTOR VIII DEFICIENCY
     Route: 042
     Dates: start: 20090123, end: 20090123
  2. XYNTHA [Suspect]
     Route: 042
     Dates: start: 20090216, end: 20090216

REACTIONS (5)
  - COLD SWEAT [None]
  - DIZZINESS [None]
  - MALAISE [None]
  - NAUSEA [None]
  - PALLOR [None]
